FAERS Safety Report 8005124-8 (Version None)
Quarter: 2011Q4

REPORT INFORMATION
  Report Type: 
  Country: None (occurrence: None)
  Receive Date: 20111223
  Receipt Date: 20111216
  Transmission Date: 20120403
  Serious: Yes (Hospitalization, Other)
  Sender: FDA-Public Use
  Company Number: PHEH2011US00667

PATIENT
  Sex: Female
  Weight: 69.57 kg

DRUGS (1)
  1. EXJADE [Suspect]
     Indication: THALASSAEMIA
     Dosage: 1000 MG, QD
     Route: 048
     Dates: start: 20090904, end: 20111031

REACTIONS (5)
  - FALL [None]
  - WEIGHT INCREASED [None]
  - WHITE BLOOD CELL COUNT INCREASED [None]
  - CYSTITIS [None]
  - HIP FRACTURE [None]
